FAERS Safety Report 19564419 (Version 1)
Quarter: 2021Q3

REPORT INFORMATION
  Report Type: Spontaneous
  Country: US (occurrence: US)
  Receive Date: 20210716
  Receipt Date: 20210716
  Transmission Date: 20211014
  Serious: Yes (Life-Threatening, Hospitalization, Other)
  Sender: FDA-Public Use
  Company Number: US-SA-2021SA233950

PATIENT
  Age: 15 Year
  Sex: Male

DRUGS (3)
  1. ALPROLIX [Suspect]
     Active Substance: EFTRENONACOG ALFA
  2. BENEFIX [Suspect]
     Active Substance: COAGULATION FACTOR IX RECOMBINANT HUMAN\ISOPROPYL ALCOHOL
  3. ALPROLIX [Suspect]
     Active Substance: EFTRENONACOG ALFA

REACTIONS (3)
  - Haemorrhage [Unknown]
  - Wound secretion [Unknown]
  - Tonsillar haemorrhage [Unknown]
